FAERS Safety Report 6287164-2 (Version None)
Quarter: 2009Q3

REPORT INFORMATION
  Report Type: 
  Country: None (occurrence: None)
  Receive Date: 20090728
  Receipt Date: 20090717
  Transmission Date: 20100115
  Serious: Yes (Death, Hospitalization)
  Sender: FDA-Public Use
  Company Number: CR-WYE-H10216809

PATIENT
  Sex: Male

DRUGS (1)
  1. PANTECTA [Suspect]
     Indication: GASTRIC ULCER
     Route: 048
     Dates: start: 20090401, end: 20090401

REACTIONS (2)
  - ACUTE PULMONARY OEDEMA [None]
  - RENAL FAILURE CHRONIC [None]
